FAERS Safety Report 4915860-5 (Version None)
Quarter: 2006Q1

REPORT INFORMATION
  Report Type: 
  Country: None (occurrence: None)
  Receive Date: 20060214
  Receipt Date: 20060206
  Transmission Date: 20060701
  Serious: Yes (Death, Life-Threatening, Hospitalization)
  Sender: FDA-Public Use
  Company Number: 163-20785-05100040

PATIENT
  Age: 69 Year
  Sex: Male
  Weight: 103.4201 kg

DRUGS (23)
  1. THALOMID [Suspect]
     Indication: MULTIPLE MYELOMA
     Dosage: 100 MG HS FOR 3 DAYS ALTERNATING WITH 150 MG HS FOR 3 DAYS, ORAL
     Route: 048
     Dates: start: 20050811, end: 20050901
  2. THALOMID [Suspect]
     Indication: MULTIPLE MYELOMA
     Dosage: 100 MG HS FOR 3 DAYS ALTERNATING WITH 150 MG HS FOR 3 DAYS, ORAL
     Route: 048
     Dates: start: 20050915, end: 20050919
  3. DEXAMETHASONE [Suspect]
     Indication: MULTIPLE MYELOMA
     Dosage: 40 MG, 4 DAYS ON, 4 DAYS OFF, ORAL
     Route: 048
     Dates: start: 20050811, end: 20050830
  4. DEXAMETHASONE [Suspect]
     Indication: MULTIPLE MYELOMA
     Dosage: 40 MG, 4 DAYS ON, 4 DAYS OFF, ORAL
     Route: 048
     Dates: start: 20050915, end: 20050918
  5. HUMULIN-N INSULIN                       (INSULIN HUMAN INJECTION, ISOP [Concomitant]
  6. NYSTATIN [Concomitant]
  7. PROTONIX [Concomitant]
  8. ZOMETA [Concomitant]
  9. PLAVIX [Concomitant]
  10. DAPSONE [Concomitant]
  11. ARANESP [Concomitant]
  12. NEUTROPHOS (NEUTRA-PHOS) [Concomitant]
  13. ACYCLOVIR [Concomitant]
  14. BENICAR [Concomitant]
  15. HYDROCHLOROTHIAZIDE [Concomitant]
  16. NORVASC [Concomitant]
  17. NITROGLYCERIN [Concomitant]
  18. WARFARIN [Concomitant]
  19. OXYGEN [Concomitant]
  20. AVANDIA [Concomitant]
  21. STARLIX [Concomitant]
  22. LOVASTATIN [Concomitant]
  23. ALLOPURINOL [Concomitant]

REACTIONS (10)
  - ANAEMIA [None]
  - CARDIAC FAILURE CONGESTIVE [None]
  - CARDIO-RESPIRATORY ARREST [None]
  - HYPERCOAGULATION [None]
  - METABOLIC ACIDOSIS [None]
  - MYOCARDIAL INFARCTION [None]
  - RENAL FAILURE ACUTE [None]
  - RESPIRATORY DISORDER [None]
  - THYROID MASS [None]
  - VENTRICULAR FIBRILLATION [None]
